FAERS Safety Report 24607292 (Version 2)
Quarter: 2025Q3

REPORT INFORMATION
  Report Type: Spontaneous
  Country: EU (occurrence: EU)
  Receive Date: 20241112
  Receipt Date: 20250701
  Transmission Date: 20251020
  Serious: Yes (Death, Hospitalization, Other)
  Sender: SANDOZ
  Company Number: EU-JNJFOC-20241103448

PATIENT
  Age: 48 Year
  Sex: Female

DRUGS (8)
  1. CYCLOPHOSPHAMIDE [Suspect]
     Active Substance: CYCLOPHOSPHAMIDE
     Indication: Amyloidosis
     Route: 065
  2. CYCLOPHOSPHAMIDE [Suspect]
     Active Substance: CYCLOPHOSPHAMIDE
     Indication: Primary amyloidosis
  3. DEXAMETHASONE [Suspect]
     Active Substance: DEXAMETHASONE
     Indication: Amyloidosis
     Route: 065
  4. DEXAMETHASONE [Suspect]
     Active Substance: DEXAMETHASONE
     Indication: Primary amyloidosis
  5. TOLODODEKIN ALFA [Suspect]
     Active Substance: TOLODODEKIN ALFA
     Indication: Amyloidosis
     Route: 065
  6. TOLODODEKIN ALFA [Suspect]
     Active Substance: TOLODODEKIN ALFA
     Indication: Primary amyloidosis
  7. VELCADE [Suspect]
     Active Substance: BORTEZOMIB
     Indication: Amyloidosis
     Route: 065
  8. VELCADE [Suspect]
     Active Substance: BORTEZOMIB
     Indication: Primary amyloidosis

REACTIONS (2)
  - Cardiac arrest [Fatal]
  - Therapeutic product effect incomplete [Unknown]
